FAERS Safety Report 6279734-2 (Version None)
Quarter: 2009Q3

REPORT INFORMATION
  Report Type: 
  Country: None (occurrence: None)
  Receive Date: 20090723
  Receipt Date: 20090715
  Transmission Date: 20100115
  Serious: Yes (Other)
  Sender: FDA-Public Use
  Company Number: FR-GENENTECH-285667

PATIENT
  Age: 75 Year
  Sex: Female

DRUGS (3)
  1. ACTIVASE [Suspect]
     Indication: ISCHAEMIC STROKE
     Dosage: 0.9 MG/KG, UNK
     Route: 042
  2. ACETAMINOPHEN [Concomitant]
     Indication: ANALGESIA
     Route: 042
  3. PANTOPRAZOLE SODIUM [Concomitant]
     Indication: PROPHYLAXIS
     Dosage: UNK

REACTIONS (3)
  - HAEMODYNAMIC INSTABILITY [None]
  - HYPOVOLAEMIA [None]
  - OPERATIVE HAEMORRHAGE [None]
